FAERS Safety Report 6560334-1 (Version None)
Quarter: 2010Q1

REPORT INFORMATION
  Report Type: 
  Country: None (occurrence: None)
  Receive Date: 20100129
  Receipt Date: 20090921
  Transmission Date: 20100710
  Serious: No
  Sender: FDA-Public Use
  Company Number: US-ABBOTT-09P-163-0598407-00

PATIENT
  Sex: Female

DRUGS (1)
  1. HUMIRA [Suspect]
     Indication: BEHCET'S SYNDROME
     Dates: start: 20090915

REACTIONS (2)
  - MUSCULAR WEAKNESS [None]
  - PARAESTHESIA [None]
